FAERS Safety Report 7137282-1 (Version None)
Quarter: 2010Q4

REPORT INFORMATION
  Report Type: 
  Country: None (occurrence: None)
  Receive Date: 20101206
  Receipt Date: 20101123
  Transmission Date: 20110411
  Serious: Yes (Other)
  Sender: FDA-Public Use
  Company Number: PHHY2010BR80577

PATIENT
  Sex: Male

DRUGS (1)
  1. DIOVAN [Suspect]
     Dosage: 160 MG, UNK

REACTIONS (5)
  - DRUG DOSE OMISSION [None]
  - HYPERTENSION [None]
  - INFARCTION [None]
  - MALAISE [None]
  - SURGERY [None]
